FAERS Safety Report 20686432 (Version 7)
Quarter: 2023Q1

REPORT INFORMATION
  Report Type: Spontaneous
  Country: US (occurrence: US)
  Receive Date: 20220407
  Receipt Date: 20230303
  Transmission Date: 20230418
  Serious: No
  Sender: FDA-Public Use
  Company Number: US-PFIZER INC-202101340582

PATIENT
  Age: 72 Year
  Sex: Female

DRUGS (3)
  1. SUTENT [Suspect]
     Active Substance: SUNITINIB MALATE
     Dosage: 12.5 MG
  2. SUTENT [Suspect]
     Active Substance: SUNITINIB MALATE
     Dosage: 37.5 MG
  3. SUTENT [Suspect]
     Active Substance: SUNITINIB MALATE
     Dosage: UNK
     Dates: end: 202210

REACTIONS (9)
  - Neoplasm progression [Unknown]
  - Anxiety [Unknown]
  - Psychiatric symptom [Unknown]
  - Decreased appetite [Unknown]
  - Malnutrition [Unknown]
  - Diarrhoea [Unknown]
  - Malaise [Unknown]
  - Illness [Unknown]
  - Nausea [Unknown]
